FAERS Safety Report 6898731-7 (Version None)
Quarter: 2010Q3

REPORT INFORMATION
  Report Type: 
  Country: None (occurrence: None)
  Receive Date: 20100802
  Receipt Date: 20071120
  Transmission Date: 20110219
  Serious: No
  Sender: FDA-Public Use
  Company Number: US-PFIZER INC-2007095373

PATIENT
  Sex: Male
  Weight: 77.1 kg

DRUGS (9)
  1. LYRICA [Suspect]
     Indication: MYOPATHY
     Dates: start: 20070101
  2. LYRICA [Suspect]
     Indication: MUSCULAR WEAKNESS
  3. GINKGO BILOBA EXTRACT [Concomitant]
  4. CORAL CALCIUM [Concomitant]
  5. GARLIC [Concomitant]
  6. FISH OIL [Concomitant]
  7. OXYBUTYNIN HYDROCHLORIDE [Concomitant]
  8. TAMSULOSIN HYDROCHLORIDE [Concomitant]
  9. VITAMIN B6 [Concomitant]

REACTIONS (2)
  - CARDIAC ENZYMES INCREASED [None]
  - DRUG INEFFECTIVE [None]
